FAERS Safety Report 16784560 (Version 1)
Quarter: 2019Q3

REPORT INFORMATION
  Report Type: Spontaneous
  Country: ES (occurrence: ES)
  Receive Date: 20190909
  Receipt Date: 20190909
  Transmission Date: 20191005
  Serious: Yes (Other)
  Sender: FDA-Public Use
  Company Number: ES-TEVA-2019-ES-1103289

PATIENT
  Age: 58 Year
  Sex: Female
  Weight: 60 kg

DRUGS (5)
  1. IBUPROFENO (1769A) [Suspect]
     Active Substance: IBUPROFEN
     Indication: TOOTHACHE
     Dosage: DOSAGE: 600
     Route: 048
     Dates: start: 20190809
  2. CLOBEX 500 MICROGRAMOS/G CHAMPU , 1 FRASCO DE 125 ML [Concomitant]
     Route: 003
  3. VIPDOMET 12,5 MG/850 MG COMPRIMIDOS RECUBIERTOS CON PELICULA , 56 COMP [Concomitant]
     Route: 048
  4. CLOBISDIN 500 MICROGRAMOS/ML SOLUCION CUTANEA , 100 ML [Concomitant]
     Route: 003
  5. IBUPROFENO (1769A) [Suspect]
     Active Substance: IBUPROFEN
     Indication: ARTHRALGIA

REACTIONS (5)
  - Urticaria [Unknown]
  - Pruritus [Unknown]
  - Lip oedema [Unknown]
  - Eyelid oedema [Unknown]
  - Tongue oedema [Unknown]

NARRATIVE: CASE EVENT DATE: 20190809
